FAERS Safety Report 7518384-4 (Version None)
Quarter: 2011Q2

REPORT INFORMATION
  Report Type: 
  Country: None (occurrence: None)
  Receive Date: 20110602
  Receipt Date: 20110524
  Transmission Date: 20111010
  Serious: Yes (Disabling, Other)
  Sender: FDA-Public Use
  Company Number: FR-AMGEN-FRASP2011025640

PATIENT
  Age: 51 Year
  Sex: Female

DRUGS (9)
  1. ENBREL [Suspect]
     Indication: RHEUMATOID ARTHRITIS
     Dosage: 50 MG, WEEKLY
     Route: 058
     Dates: start: 20080929, end: 20090420
  2. ACETAMINOPHEN AND TRAMADOL HCL [Concomitant]
     Dosage: UNK
  3. OMEPRAZOLE [Concomitant]
     Dosage: UNK
  4. METHOTREXATE SODIUM [Suspect]
     Indication: RHEUMATOID ARTHRITIS
     Dosage: 1 DF, WEEKLY
     Route: 042
     Dates: start: 20080901, end: 20101101
  5. HUMIRA [Suspect]
     Indication: RHEUMATOID ARTHRITIS
     Dosage: UNK
     Route: 048
     Dates: start: 20090420, end: 20101101
  6. KETOPROFEN [Concomitant]
     Dosage: 1 DF, 2X/DAY
     Route: 048
     Dates: start: 20070101
  7. METHOTREXATE [Suspect]
     Indication: RHEUMATOID ARTHRITIS
     Dosage: 1 DF, 4X/DAY
     Route: 048
     Dates: start: 20070501, end: 20080201
  8. CLONAZEPAM [Concomitant]
     Dosage: UNK
  9. ESCITALOPRAM [Concomitant]
     Dosage: UNK

REACTIONS (5)
  - LEGIONELLA INFECTION [None]
  - INFECTION [None]
  - SKIN INFECTION [None]
  - CEREBELLAR SYNDROME [None]
  - SINUSITIS [None]
